FAERS Safety Report 13483139 (Version 2)
Quarter: 2017Q2

REPORT INFORMATION
  Report Type: Spontaneous
  Country: US (occurrence: US)
  Receive Date: 20170426
  Receipt Date: 20170522
  Transmission Date: 20170830
  Serious: No
  Sender: FDA-Public Use
  Company Number: US-ASTRAZENECA-2017SE42471

PATIENT
  Sex: Male

DRUGS (2)
  1. BYDUREON [Suspect]
     Active Substance: EXENATIDE
     Indication: BLOOD GLUCOSE ABNORMAL
     Dosage: BYDUREON SDT, STARTED 4-6 YEARS AGO
     Route: 058
     Dates: end: 2017
  2. BYDUREON [Suspect]
     Active Substance: EXENATIDE
     Indication: BLOOD GLUCOSE ABNORMAL
     Dosage: BYDUREON PEN
     Route: 058
     Dates: start: 201703

REACTIONS (7)
  - Device leakage [Unknown]
  - Skin mass [Unknown]
  - Incorrect dose administered [Not Recovered/Not Resolved]
  - Blood glucose fluctuation [Unknown]
  - Injection site extravasation [Not Recovered/Not Resolved]
  - Device difficult to use [Unknown]
  - Off label use [Recovered/Resolved]

NARRATIVE: CASE EVENT DATE: 2017
